FAERS Safety Report 20961527 (Version 1)
Quarter: 2022Q2

REPORT INFORMATION
  Report Type: Spontaneous
  Country: PT (occurrence: PT)
  Receive Date: 20220615
  Receipt Date: 20220615
  Transmission Date: 20220721
  Serious: Yes (Other)
  Sender: FDA-Public Use
  Company Number: PT-Inventia-000555

PATIENT
  Age: 45 Year
  Sex: Female

DRUGS (2)
  1. DULOXETINE [Suspect]
     Active Substance: DULOXETINE
     Indication: Major depression
  2. VENLAFAXINE [Suspect]
     Active Substance: VENLAFAXINE HYDROCHLORIDE
     Indication: Major depression

REACTIONS (4)
  - Colitis microscopic [Unknown]
  - Lymphocytic oesophagitis [Unknown]
  - Gastritis [Unknown]
  - Duodenitis [Unknown]
